FAERS Safety Report 11090252 (Version 2)
Quarter: 2015Q2

REPORT INFORMATION
  Report Type: Spontaneous
  Country: US (occurrence: US)
  Receive Date: 20150505
  Receipt Date: 20150506
  Transmission Date: 20150821
  Serious: Yes (Death, Hospitalization, Other)
  Sender: FDA-Public Use
  Company Number: US-PFIZER INC-2015148458

PATIENT
  Age: 71 Year
  Sex: Female

DRUGS (1)
  1. IBRANCE [Suspect]
     Active Substance: PALBOCICLIB
     Indication: BREAST CANCER
     Dosage: 125 MG, DAILY
     Dates: start: 20150414, end: 20150416

REACTIONS (6)
  - Abdominal pain upper [Unknown]
  - Death [Fatal]
  - Large intestinal obstruction [Unknown]
  - Disease progression [Unknown]
  - Infection [Unknown]
  - Breast cancer [Unknown]

NARRATIVE: CASE EVENT DATE: 2015
